FAERS Safety Report 20290299 (Version 1)
Quarter: 2022Q1

REPORT INFORMATION
  Report Type: Report from Study
  Country: US (occurrence: US)
  Receive Date: 20220104
  Receipt Date: 20220104
  Transmission Date: 20220424
  Serious: Yes (Hospitalization)
  Sender: FDA-Public Use
  Company Number: US-MYLANLABS-2022M1000344

PATIENT
  Age: 12 Year
  Sex: Male

DRUGS (10)
  1. ACYCLOVIR [Suspect]
     Active Substance: ACYCLOVIR
     Indication: Necrotising retinitis
     Dosage: UNK, (AT THE AGE OF 12 YEARS)
     Route: 042
  2. ACYCLOVIR [Suspect]
     Active Substance: ACYCLOVIR
     Indication: Herpes simplex
     Dosage: UNK, (AT THE AGE OF 14 YEARS)
     Route: 042
  3. VALACYCLOVIR HYDROCHLORIDE [Suspect]
     Active Substance: VALACYCLOVIR HYDROCHLORIDE
     Indication: Necrotising retinitis
     Dosage: 500 MILLIGRAM, TID (AT THE AGE OF 12 YEARS)
     Route: 065
  4. VALACYCLOVIR HYDROCHLORIDE [Suspect]
     Active Substance: VALACYCLOVIR HYDROCHLORIDE
     Indication: Herpes simplex
  5. PREDNISOLONE [Suspect]
     Active Substance: PREDNISOLONE
     Indication: Necrotising retinitis
     Dosage: UNK, (AT THE AGE OF 12 YEARS)
     Route: 065
  6. PREDNISOLONE [Suspect]
     Active Substance: PREDNISOLONE
     Indication: Herpes simplex
     Dosage: UNK, (AT THE AGE OF 14 YEARS)
     Route: 065
  7. FOSCARNET [Suspect]
     Active Substance: FOSCARNET
     Indication: Necrotising retinitis
     Dosage: UNK, THREE INJECTIONS (AT THE AGE OF 12 YEARS)
     Route: 065
  8. FOSCARNET [Suspect]
     Active Substance: FOSCARNET
     Indication: Herpes simplex
     Dosage: UNK, THREE INJECTIONS (AT THE AGE OF 14 YEARS)
     Route: 065
  9. CIDOFOVIR [Concomitant]
     Active Substance: CIDOFOVIR
     Indication: Necrotising retinitis
     Dosage: 300 MILLIGRAM, BIWEEKLY (300 MG Q2 WEEKS (THREE DOSES) )
     Route: 042
  10. CIDOFOVIR [Concomitant]
     Active Substance: CIDOFOVIR
     Indication: Herpes simplex

REACTIONS (1)
  - Drug ineffective [Unknown]
